FAERS Safety Report 15097527 (Version 1)
Quarter: 2018Q3

REPORT INFORMATION
  Report Type: Spontaneous
  Country: DK (occurrence: DK)
  Receive Date: 20180702
  Receipt Date: 20180702
  Transmission Date: 20181010
  Serious: Yes (Death, Other)
  Sender: FDA-Public Use
  Company Number: DK-DSJP-DSE-2018-125597

PATIENT

DRUGS (4)
  1. LIXIANA [Suspect]
     Active Substance: EDOXABAN TOSYLATE
     Indication: ATRIAL FLUTTER
     Dosage: 60 MG, QD
     Route: 048
     Dates: start: 20180604
  2. VIBEDEN [Concomitant]
     Indication: VITAMIN B12 DEFICIENCY
     Dosage: 1 DF, QD
     Route: 030
     Dates: start: 20171102
  3. BETNOVAT MED CHINOFORM [Concomitant]
     Indication: ECZEMA INFECTED
     Dosage: 2 DF, QD
     Route: 003
     Dates: start: 20180420, end: 20180505
  4. PANTOPRAZOLE TEVA [Concomitant]
     Active Substance: PANTOPRAZOLE SODIUM
     Indication: GASTROOESOPHAGEAL REFLUX DISEASE
     Dosage: 40 MG, QD
     Route: 048
     Dates: start: 20180604

REACTIONS (5)
  - Vomiting [Unknown]
  - Areflexia [Unknown]
  - Loss of consciousness [Unknown]
  - Endotracheal intubation [Unknown]
  - Cerebral haematoma [Fatal]

NARRATIVE: CASE EVENT DATE: 20180609
